FAERS Safety Report 8073696-3 (Version None)
Quarter: 2012Q1

REPORT INFORMATION
  Report Type: 
  Country: None (occurrence: None)
  Receive Date: 20120126
  Receipt Date: 20120120
  Transmission Date: 20120608
  Serious: Yes (Other)
  Sender: FDA-Public Use
  Company Number: PHHY2011GB94365

PATIENT
  Age: 21 Year
  Sex: Female

DRUGS (3)
  1. TERBUTALINE [Concomitant]
     Indication: ASTHMA
     Dosage: 500 MG, UNK
  2. LAMICTAL [Concomitant]
  3. CETIRIZINE [Suspect]
     Indication: HYPERSENSITIVITY
     Dosage: 1 DF, QD
     Route: 048
     Dates: start: 20061116, end: 20110620

REACTIONS (2)
  - EPILEPSY [None]
  - COMPLEX PARTIAL SEIZURES [None]
